FAERS Safety Report 4314820-5 (Version None)
Quarter: 2004Q1

REPORT INFORMATION
  Report Type: 
  Country: None (occurrence: None)
  Receive Date: 20040310
  Receipt Date: 20031125
  Transmission Date: 20041129
  Serious: Yes (Hospitalization, Other)
  Sender: FDA-Public Use
  Company Number: PHEH2003US10868

PATIENT
  Age: 80 Year
  Sex: Female
  Weight: 57 kg

DRUGS (14)
  1. DIOVAN [Suspect]
     Indication: HYPERTENSION
     Dosage: 80 MG, QD
     Route: 048
     Dates: start: 20010901
  2. SYNTHROID [Concomitant]
  3. LIPITOR [Concomitant]
  4. PREDNISONE [Concomitant]
  5. ATENOLOL [Concomitant]
  6. ULTRACET [Concomitant]
  7. PAXIL [Concomitant]
  8. FOLIC ACID [Concomitant]
  9. VITAMIN B-12 [Concomitant]
  10. VIACTIV                                 /USA/ [Concomitant]
  11. ASPIRIN [Concomitant]
  12. TEQUIN [Suspect]
     Dates: start: 20030929, end: 20030929
  13. ZANTAC [Concomitant]
  14. LASIX                                   /SCH/ [Concomitant]

REACTIONS (10)
  - BRONCHITIS [None]
  - DEHYDRATION [None]
  - DIARRHOEA [None]
  - GASTROOESOPHAGEAL REFLUX DISEASE [None]
  - HYPOTENSION [None]
  - INTESTINAL ISCHAEMIA [None]
  - NAUSEA [None]
  - PYREXIA [None]
  - SHOCK [None]
  - VOMITING [None]
